FAERS Safety Report 9563858 (Version 1)
Quarter: 2013Q1

REPORT INFORMATION
  Report Type: Spontaneous
  Country: US (occurrence: None)
  Receive Date: 20121130
  Receipt Date: 20121130
  Transmission Date: 20140127
  Serious: Yes (Hospitalization)
  Sender: FDA-Public Use
  Company Number: 347208

PATIENT
  Age: 49 Year
  Sex: Male
  Weight: 110.7 kg

DRUGS (5)
  1. NOVOLOG FLEXPEN [Suspect]
     Indication: TYPE 2 DIABETES MELLITUS
     Dosage: 10 U, TID, PLUS SLIDING SCALE, SUBCUTANEOUS
  2. LANTUS (INSULIN GLARGINE) [Concomitant]
  3. GLYBURIDE (GLIBENCLAMIDE) [Concomitant]
  4. TRADJENTA (LINAGLIPTIN) [Concomitant]
  5. CYMBALTA (DULOXETINE HYDROCHLORIDE) [Concomitant]

REACTIONS (2)
  - Drug dose omission [None]
  - Blood glucose increased [None]
